FAERS Safety Report 9006517 (Version 1)
Quarter: 2013Q1

REPORT INFORMATION
  Report Type: Spontaneous
  Country: US (occurrence: US)
  Receive Date: 20130110
  Receipt Date: 20130110
  Transmission Date: 20140127
  Serious: No
  Sender: FDA-Public Use
  Company Number: US-MYLANLABS-2012S1000440

PATIENT
  Age: 88 Year
  Sex: Male
  Weight: 77.57 kg

DRUGS (12)
  1. METOLAZONE [Suspect]
     Indication: FLUID RETENTION
     Route: 048
     Dates: start: 20111214
  2. METOLAZONE [Suspect]
     Indication: CARDIAC FAILURE CONGESTIVE
     Route: 048
     Dates: start: 20111214
  3. SYNTHROID [Concomitant]
  4. ADVAIR [Concomitant]
  5. PILOCARPINE [Concomitant]
  6. POTASSIUM [Concomitant]
  7. ARICEPT [Concomitant]
  8. PROSCAR [Concomitant]
  9. FLOMAX /01280302/ [Concomitant]
  10. NEXIUM [Concomitant]
  11. DIGOXIN [Concomitant]
  12. DEMADEX /01036501/ [Concomitant]

REACTIONS (1)
  - Vitamin D decreased [Not Recovered/Not Resolved]
